FAERS Safety Report 9252183 (Version 1)
Quarter: 2013Q2

REPORT INFORMATION
  Report Type: Report from Study
  Country: DE (occurrence: DE)
  Receive Date: 20130424
  Receipt Date: 20130424
  Transmission Date: 20140414
  Serious: Yes (Death)
  Sender: FDA-Public Use
  Company Number: DE-TEVA-400097GER

PATIENT
  Sex: Female
  Weight: 60 kg

DRUGS (4)
  1. AZILECT [Suspect]
     Indication: PARKINSONISM
     Dosage: 1 MILLIGRAM DAILY;
     Route: 048
     Dates: start: 20100521, end: 20110524
  2. LEVODOPA [Concomitant]
     Indication: PARKINSONISM
     Dosage: 200 UNKNOWN DAILY;
     Dates: start: 200910, end: 20110524
  3. MEMANTINE [Concomitant]
     Indication: DEMENTIA
     Dosage: 20 UNKNOWN DAILY;
     Dates: start: 20100520, end: 20110524
  4. DOMPERIDONE [Concomitant]
     Indication: CONSTIPATION
     Dosage: 10 UNKNOWN DAILY;
     Dates: start: 20091029, end: 20110524

REACTIONS (1)
  - Death [Fatal]
